FAERS Safety Report 19226751 (Version 1)
Quarter: 2021Q2

REPORT INFORMATION
  Report Type: Spontaneous
  Country: US (occurrence: US)
  Receive Date: 20210506
  Receipt Date: 20210506
  Transmission Date: 20210717
  Serious: Yes (Other)
  Sender: FDA-Public Use
  Company Number: US-AMGEN-USASP2021066362

PATIENT
  Age: 30 Year
  Sex: Male

DRUGS (5)
  1. BUSULFAN. [Concomitant]
     Active Substance: BUSULFAN
     Indication: HODGKIN^S DISEASE NODULAR SCLEROSIS
     Dosage: UNK
  2. ANTITHYMOCYTE IMMUNOGLOBULIN [Concomitant]
     Active Substance: THYMOCYTE IMMUNE GLOBULIN NOS
     Dosage: 20 MILLIGRAM/KILOGRAM, QD FOR 3 DAYS
     Route: 042
  3. FILGRASTIM [Suspect]
     Active Substance: FILGRASTIM
     Indication: ALLOGENIC STEM CELL TRANSPLANTATION
     Dosage: 5 MICROGRAM/KILOGRAM, QD (ON DAY 7 POST TRANSPLANT FOR 3 CONS. DAY)
     Route: 058
  4. CYCLOPHOSPHAMIDE. [Concomitant]
     Active Substance: CYCLOPHOSPHAMIDE
     Indication: HODGKIN^S DISEASE NODULAR SCLEROSIS
     Dosage: 1 GRAM PER SQUARE METRE, QD 3 DAYS
     Route: 042
  5. FLUDARABINE [Concomitant]
     Active Substance: FLUDARABINE PHOSPHATE
     Dosage: 25 MILLIGRAM/SQ. METER QD FOR 5 DAYS
     Route: 042

REACTIONS (3)
  - Hodgkin^s disease [Unknown]
  - Toxicity to various agents [Unknown]
  - Chronic graft versus host disease [Unknown]

NARRATIVE: CASE EVENT DATE: 200002
